FAERS Safety Report 19016141 (Version 3)
Quarter: 2021Q3

REPORT INFORMATION
  Report Type: Spontaneous
  Country: US (occurrence: US)
  Receive Date: 20210317
  Receipt Date: 20210913
  Transmission Date: 20211014
  Serious: No
  Sender: FDA-Public Use
  Company Number: US-GLOBAL BLOOD THERAPEUTICS INC-US-GBT-20-04227

PATIENT
  Age: 74 Year
  Sex: Male

DRUGS (3)
  1. MAGNESIUM [Concomitant]
     Active Substance: MAGNESIUM
     Indication: SLEEP DISORDER
     Dosage: NOT PROVIDED
  2. TWO UNITS OF BLOOD [Concomitant]
     Indication: PRODUCT USED FOR UNKNOWN INDICATION
     Dosage: NOT PROVIDED
  3. OXBRYTA [Suspect]
     Active Substance: VOXELOTOR
     Indication: SICKLE CELL DISEASE
     Route: 048
     Dates: start: 20201210, end: 20210519

REACTIONS (14)
  - Flatulence [Not Recovered/Not Resolved]
  - Bowel movement irregularity [Not Recovered/Not Resolved]
  - Nausea [Recovering/Resolving]
  - Parosmia [Not Recovered/Not Resolved]
  - Haemoglobin decreased [Unknown]
  - Muscle spasms [Recovered/Resolved]
  - Sickle cell anaemia with crisis [Unknown]
  - Decreased appetite [Not Recovered/Not Resolved]
  - Abdominal discomfort [Recovered/Resolved]
  - Product dose omission issue [Unknown]
  - Weight decreased [Unknown]
  - Blood iron decreased [Unknown]
  - Diarrhoea [Recovered/Resolved]
  - Product use complaint [Recovering/Resolving]

NARRATIVE: CASE EVENT DATE: 202012
